FAERS Safety Report 23708415 (Version 1)
Quarter: 2024Q2

REPORT INFORMATION
  Report Type: Spontaneous
  Country: US (occurrence: US)
  Receive Date: 20240404
  Receipt Date: 20240404
  Transmission Date: 20240716
  Serious: Yes (Other)
  Sender: FDA-Public Use
  Company Number: US-FENNEC PHARMACEUTICALS, INC.-2024FEN00005

PATIENT
  Sex: Male

DRUGS (1)
  1. SODIUM THIOSULFATE [Suspect]
     Active Substance: SODIUM THIOSULFATE
     Route: 042

REACTIONS (3)
  - Infusion related reaction [Unknown]
  - Hypotension [Unknown]
  - Off label use [Unknown]
